FAERS Safety Report 15790476 (Version 2)
Quarter: 2019Q1

REPORT INFORMATION
  Report Type: Spontaneous
  Country: US (occurrence: US)
  Receive Date: 20190104
  Receipt Date: 20190109
  Transmission Date: 20190417
  Serious: Yes (Other)
  Sender: FDA-Public Use
  Company Number: US-ABBVIE-18S-163-2608871-00

PATIENT
  Age: 84 Year
  Sex: Male
  Weight: 61.74 kg

DRUGS (6)
  1. ANDROGEL [Suspect]
     Active Substance: TESTOSTERONE
     Indication: HYPOGONADISM
     Dosage: 2 PUMPS DAILY
     Route: 061
     Dates: start: 2013
  2. TESTOSTERONE. [Suspect]
     Active Substance: TESTOSTERONE
     Indication: HYPOGONADISM
     Route: 065
  3. PLAVIX [Concomitant]
     Active Substance: CLOPIDOGREL BISULFATE
     Indication: PRODUCT USED FOR UNKNOWN INDICATION
  4. ANDROGEL [Suspect]
     Active Substance: TESTOSTERONE
     Indication: HYPOGONADISM
     Route: 061
     Dates: start: 2007, end: 2013
  5. ANDROGEL [Suspect]
     Active Substance: TESTOSTERONE
     Dosage: 2 PUMPS DAILY
     Route: 061
  6. TESTOSTERONE. [Suspect]
     Active Substance: TESTOSTERONE
     Indication: HYPOGONADISM
     Dosage: PATCHES
     Route: 065
     Dates: end: 2007

REACTIONS (5)
  - Dry skin [Not Recovered/Not Resolved]
  - Bladder cancer [Unknown]
  - Hydronephrosis [Recovering/Resolving]
  - Blood urine present [Recovered/Resolved]
  - Transitional cell cancer of the renal pelvis and ureter [Recovering/Resolving]

NARRATIVE: CASE EVENT DATE: 201711
